FAERS Safety Report 6821620-0 (Version None)
Quarter: 2010Q3

REPORT INFORMATION
  Report Type: 
  Country: None (occurrence: None)
  Receive Date: 20100707
  Receipt Date: 20090617
  Transmission Date: 20110219
  Serious: No
  Sender: FDA-Public Use
  Company Number: US-PFIZER INC-2009191817

PATIENT
  Sex: Female

DRUGS (2)
  1. ZOLOFT [Suspect]
     Dosage: UNK
  2. VALIUM [Suspect]
     Dosage: 30 MG, 1X/DAY

REACTIONS (2)
  - DRUG INEFFECTIVE [None]
  - NAUSEA [None]
